FAERS Safety Report 11810069 (Version 2)
Quarter: 2015Q4

REPORT INFORMATION
  Report Type: Spontaneous
  Country: US (occurrence: US)
  Receive Date: 20151208
  Receipt Date: 20151222
  Transmission Date: 20160305
  Serious: Yes (Other)
  Sender: FDA-Public Use
  Company Number: US-AUROBINDO-AUR-APL-2015-11101

PATIENT
  Age: 52 Year
  Sex: Male

DRUGS (5)
  1. LOXAPINE. [Suspect]
     Active Substance: LOXAPINE
     Indication: AUTISM SPECTRUM DISORDER
     Dosage: 5 MG, DAILY
     Route: 065
  2. PAROXETINE [Suspect]
     Active Substance: PAROXETINE\PAROXETINE HYDROCHLORIDE
     Indication: AUTISM SPECTRUM DISORDER
     Dosage: 40 MG, DAILY
     Route: 065
  3. PAROXETINE [Suspect]
     Active Substance: PAROXETINE\PAROXETINE HYDROCHLORIDE
     Indication: PRADER-WILLI SYNDROME
  4. BENZTROPINE [Concomitant]
     Active Substance: BENZTROPINE
     Indication: PRODUCT USED FOR UNKNOWN INDICATION
     Dosage: 0.5 MG, TWO TIMES A DAY
     Route: 065
  5. LOXAPINE. [Suspect]
     Active Substance: LOXAPINE
     Indication: PRADER-WILLI SYNDROME

REACTIONS (2)
  - Tardive dyskinesia [Unknown]
  - Drug level increased [Unknown]
